FAERS Safety Report 7002263-5 (Version None)
Quarter: 2010Q3

REPORT INFORMATION
  Report Type: 
  Country: None (occurrence: None)
  Receive Date: 20100920
  Receipt Date: 20091005
  Transmission Date: 20110219
  Serious: No
  Sender: FDA-Public Use
  Company Number: US-ASTRAZENECA-2009SE18347

PATIENT
  Age: 35 Year
  Sex: Female

DRUGS (3)
  1. SEROQUEL XR [Suspect]
     Dosage: 150 MG
     Route: 048
  2. SEROQUEL XR [Suspect]
     Dosage: 300 MG
     Route: 048
  3. SEROQUEL XR [Suspect]
     Dosage: 50  MG
     Route: 048

REACTIONS (1)
  - PRURITUS [None]
